FAERS Safety Report 9530731 (Version 1)
Quarter: 2013Q1

REPORT INFORMATION
  Report Type: Spontaneous
  Country: US (occurrence: None)
  Receive Date: 20130318
  Receipt Date: 20130318
  Transmission Date: 20140127
  Serious: Yes (Hospitalization, Other)
  Sender: FDA-Public Use
  Company Number: 163-21660-12120639

PATIENT
  Sex: 0

DRUGS (1)
  1. ABRAXANE [Suspect]
     Indication: PANCREATIC CARCINOMA METASTATIC
     Route: 042

REACTIONS (4)
  - Neutropenia [None]
  - Pneumonitis [None]
  - Dehydration [None]
  - Fatigue [None]
